FAERS Safety Report 6974736-2 (Version None)
Quarter: 2010Q3

REPORT INFORMATION
  Report Type: 
  Country: None (occurrence: None)
  Receive Date: 20100909
  Receipt Date: 20081201
  Transmission Date: 20110219
  Serious: No
  Sender: FDA-Public Use
  Company Number: US-WYE-H07042708

PATIENT
  Sex: Female
  Weight: 63.56 kg

DRUGS (6)
  1. PRISTIQ [Suspect]
     Indication: ANXIETY
     Dosage: 50 MG (FREQUENCY UNSPECIFIED)
     Route: 048
     Dates: start: 20081121, end: 20080101
  2. PRISTIQ [Suspect]
     Indication: BIPOLAR DISORDER
     Dosage: 100 MG (FREQUENCY UNPSECIFIED)
     Route: 048
     Dates: start: 20080101
  3. SULFAMETHOXAZOLE AND TRIMETHOPRIM [Concomitant]
  4. MOTRIN [Concomitant]
  5. FEXOFENADINE HCL [Concomitant]
  6. CLONAZEPAM [Concomitant]

REACTIONS (2)
  - CONSTIPATION [None]
  - INSOMNIA [None]
